FAERS Safety Report 6196031-4 (Version None)
Quarter: 2009Q2

REPORT INFORMATION
  Report Type: 
  Country: None (occurrence: None)
  Receive Date: 20090520
  Receipt Date: 20050531
  Transmission Date: 20091009
  Serious: Yes (Death, Hospitalization)
  Sender: FDA-Public Use
  Company Number: NL-ROCHE-598723

PATIENT
  Sex: Female

DRUGS (14)
  1. CAPECITABINE [Suspect]
     Indication: COLORECTAL CANCER
     Dosage: GIVEN BID ON DAY 1 TO DAY 14 PER THREE WEEKS.DAILY DOSE REPORTED AS 4000 MG
     Route: 048
     Dates: start: 20040402, end: 20040414
  2. IRINOTECAN HCL [Suspect]
     Indication: COLORECTAL CANCER
     Route: 042
     Dates: start: 20040402
  3. LACTULOSE [Concomitant]
     Dosage: DOSE : 1500 2M
  4. PANTOZOL [Concomitant]
     Dosage: DSOE: 40 MG 1 DD
  5. DEXAMETHASONE 4MG TAB [Concomitant]
     Dosage: DOSE: 15 MG 2 DD
  6. NAPROXEN [Concomitant]
     Dosage: DOSE: 250 MG 2DD
  7. DURAGESIC-100 [Concomitant]
     Dosage: DOSE: 75 UG TO 125 UG
  8. ACETAMINOPHEN [Concomitant]
     Dosage: DOSE: 1 GR 4 DD
  9. MORPHINE [Concomitant]
     Dosage: DOSE: MORFINE 5 MG TOT 4 DD
  10. KYTRIL [Concomitant]
     Dosage: DOSE : 1 MG 1 DD
  11. SEVREDOL [Concomitant]
     Dosage: DOSE: 20 MG 2 N
  12. LOPERAMIDE HCL [Concomitant]
     Dosage: DOSE: 2 MG 6 DD
  13. OXAZEPAM [Concomitant]
     Dosage: DOSE: 10 MG 3 DD
  14. CIPROFLOXACIN HCL [Concomitant]

REACTIONS (2)
  - DEHYDRATION [None]
  - INFECTION [None]
